FAERS Safety Report 4554969-5 (Version None)
Quarter: 2004Q4

REPORT INFORMATION
  Report Type: 
  Country: None (occurrence: None)
  Receive Date: 20041222
  Receipt Date: 20041104
  Transmission Date: 20050328
  Serious: Yes (Hospitalization)
  Sender: FDA-Public Use
  Company Number: 207339

PATIENT
  Age: 41 Year
  Sex: Female

DRUGS (2)
  1. AVASTIN [Suspect]
     Indication: BREAST CANCER
     Dosage: 560 MG, QOW, INTRAVENOUS
     Route: 042
     Dates: start: 20040213, end: 20040618
  2. TAXOL [Concomitant]

REACTIONS (1)
  - CARDIAC FAILURE CONGESTIVE [None]
